FAERS Safety Report 8988851 (Version 1)
Quarter: 2012Q4

REPORT INFORMATION
  Report Type: Spontaneous
  Country: US (occurrence: None)
  Receive Date: 20121224
  Receipt Date: 20121224
  Transmission Date: 20130627
  Serious: No
  Sender: FDA-Public Use
  Company Number: None

PATIENT
  Age: 53 Year
  Sex: Female
  Weight: 69.85 kg

DRUGS (3)
  1. CRESTOR [Suspect]
     Indication: RAISED LDL
     Dosage: 5mg daily po
     Route: 048
  2. PROPAFENONE [Concomitant]
  3. ASPIRIN [Concomitant]

REACTIONS (4)
  - Memory impairment [None]
  - Confusional state [None]
  - Panic disorder [None]
  - Dementia Alzheimer^s type [None]
